FAERS Safety Report 9924003 (Version 2)
Quarter: 2014Q1

REPORT INFORMATION
  Report Type: Spontaneous
  Country: FR (occurrence: FR)
  Receive Date: 20140225
  Receipt Date: 20140225
  Transmission Date: 20141002
  Serious: Yes (Hospitalization)
  Sender: FDA-Public Use
  Company Number: FR-ABBVIE-13X-056-1129312-00

PATIENT
  Age: 51 Year
  Sex: Male

DRUGS (1)
  1. DEPAKINE CHRONO [Suspect]
     Indication: EPILEPSY
     Dosage: EXTENDED RELEASE
     Route: 048
     Dates: end: 201307

REACTIONS (2)
  - Spinal compression fracture [Recovered/Resolved with Sequelae]
  - Osteoporosis [Recovered/Resolved]
